FAERS Safety Report 7595362 (Version 3)
Quarter: 2014Q1

REPORT INFORMATION
  Report Type: Report from Study
  Country: US (occurrence: US)
  Receive Date: 20100920
  Receipt Date: 20140321
  Transmission Date: 20141002
  Serious: Yes (Hospitalization)
  Sender: FDA-Public Use
  Company Number: US-ASTRAZENECA-2009SE29476

PATIENT
  Age: 65 Year
  Sex: Female

DRUGS (12)
  1. SYMBICORT PMDI [Suspect]
     Dosage: 80/4.5, UNKNOWN
     Route: 055
  2. NEXIUM [Suspect]
     Route: 048
     Dates: end: 201401
  3. NEXIUM [Suspect]
     Route: 048
  4. SEROQUEL [Suspect]
     Indication: SLEEP DISORDER
     Route: 048
  5. SEROQUEL [Suspect]
     Indication: ANXIETY
     Route: 048
  6. SEROQUEL [Suspect]
     Indication: DEPRESSION
     Route: 048
  7. SEROQUEL [Suspect]
     Indication: GASTROOESOPHAGEAL REFLUX DISEASE
     Route: 048
  8. SEROQUEL [Suspect]
     Indication: SLEEP DISORDER
     Route: 048
  9. SEROQUEL [Suspect]
     Indication: ANXIETY
     Route: 048
  10. SEROQUEL [Suspect]
     Indication: DEPRESSION
     Route: 048
  11. SEROQUEL [Suspect]
     Indication: GASTROOESOPHAGEAL REFLUX DISEASE
     Route: 048
  12. CRESTOR [Suspect]
     Route: 048

REACTIONS (10)
  - Abdominal pain upper [Recovered/Resolved]
  - Diarrhoea [Unknown]
  - Headache [Unknown]
  - Insomnia [Unknown]
  - Disturbance in attention [Unknown]
  - Psychotic disorder [Unknown]
  - Blood cholesterol increased [Unknown]
  - Anxiety [Unknown]
  - Drug dose omission [Not Recovered/Not Resolved]
  - Off label use [Unknown]
